FAERS Safety Report 4441438-6 (Version None)
Quarter: 2004Q3

REPORT INFORMATION
  Report Type: 
  Country: None (occurrence: None)
  Receive Date: 20040728
  Receipt Date: 20040330
  Transmission Date: 20050211
  Serious: No
  Sender: FDA-Public Use
  Company Number: USA040363592

PATIENT
  Age: 30 Year
  Sex: Female
  Weight: 68 kg

DRUGS (1)
  1. STRATTERA [Suspect]
     Indication: ATTENTION DEFICIT/HYPERACTIVITY DISORDER
     Dosage: 40 MG IN THE MORNING
     Dates: start: 20040329

REACTIONS (6)
  - CRYING [None]
  - EMOTIONAL DISORDER [None]
  - FATIGUE [None]
  - FEELING JITTERY [None]
  - HEADACHE [None]
  - HYPOAESTHESIA ORAL [None]
